FAERS Safety Report 15336627 (Version 2)
Quarter: 2018Q3

REPORT INFORMATION
  Report Type: Spontaneous
  Country: US (occurrence: US)
  Receive Date: 20180830
  Receipt Date: 20180915
  Transmission Date: 20181010
  Serious: No
  Sender: FDA-Public Use
  Company Number: US-009507513-1808USA009407

PATIENT

DRUGS (6)
  1. GLIPIZIDE. [Concomitant]
     Active Substance: GLIPIZIDE
  2. JANUMET XR [Suspect]
     Active Substance: METFORMIN HYDROCHLORIDE\SITAGLIPTIN PHOSPHATE
     Dosage: AFTER EVENING MEAL
     Route: 048
     Dates: start: 2016
  3. ESCITALOPRAM [Concomitant]
     Active Substance: ESCITALOPRAM OXALATE
  4. PRAVASTATIN. [Concomitant]
     Active Substance: PRAVASTATIN
  5. XARELTO [Concomitant]
     Active Substance: RIVAROXABAN
  6. SOTALOL. [Concomitant]
     Active Substance: SOTALOL

REACTIONS (2)
  - Medication residue present [Unknown]
  - Product quality issue [Unknown]

NARRATIVE: CASE EVENT DATE: 201806
